FAERS Safety Report 8848594 (Version 2)
Quarter: 2014Q3

REPORT INFORMATION
  Report Type: Report from Study
  Country: US (occurrence: US)
  Receive Date: 20121018
  Receipt Date: 20140915
  Transmission Date: 20150326
  Serious: Yes (Other)
  Sender: FDA-Public Use
  Company Number: US-ROCHE-1134410

PATIENT
  Sex: Female
  Weight: 53.57 kg

DRUGS (5)
  1. RITUXAN [Suspect]
     Active Substance: RITUXIMAB
     Indication: CHRONIC LYMPHOCYTIC LEUKAEMIA
     Route: 042
  2. NEUPOGEN [Suspect]
     Active Substance: FILGRASTIM
     Indication: PRODUCT USED FOR UNKNOWN INDICATION
     Route: 065
  3. PREDNISONE. [Concomitant]
     Active Substance: PREDNISONE
  4. CYTOXAN [Concomitant]
     Active Substance: CYCLOPHOSPHAMIDE
  5. VINCRISTINE [Concomitant]
     Active Substance: VINCRISTINE

REACTIONS (14)
  - Haemorrhage [Unknown]
  - No therapeutic response [Unknown]
  - Dyspnoea [Unknown]
  - Malaise [Unknown]
  - Rhonchi [Unknown]
  - Parkinson^s disease [Unknown]
  - Tremor [Unknown]
  - Weight decreased [Unknown]
  - Fatigue [Unknown]
  - Pyrexia [Unknown]
  - Chronic lymphocytic leukaemia [Unknown]
  - Hypogammaglobulinaemia [Unknown]
  - Decreased appetite [Unknown]
  - Gait disturbance [Unknown]
